FAERS Safety Report 5796626-3 (Version None)
Quarter: 2008Q2

REPORT INFORMATION
  Report Type: 
  Country: None (occurrence: None)
  Receive Date: 20080630
  Receipt Date: 20080630
  Transmission Date: 20081010
  Serious: No
  Sender: FDA-Public Use
  Company Number: None

PATIENT
  Age: 69 Year
  Sex: Male
  Weight: 78.5 kg

DRUGS (1)
  1. VARENICLINE [Suspect]
     Dates: start: 20070903, end: 20070919

REACTIONS (3)
  - NIGHTMARE [None]
  - SLEEP DISORDER [None]
  - TREATMENT FAILURE [None]
